FAERS Safety Report 16624923 (Version 1)
Quarter: 2019Q3

REPORT INFORMATION
  Report Type: Spontaneous
  Country: FR (occurrence: FR)
  Receive Date: 20190724
  Receipt Date: 20190724
  Transmission Date: 20191004
  Serious: Yes (Other)
  Sender: FDA-Public Use
  Company Number: FR-PFIZER INC-2019309917

PATIENT
  Age: 3 Year
  Sex: Male
  Weight: 14.8 kg

DRUGS (10)
  1. VFEND [Suspect]
     Active Substance: VORICONAZOLE
     Indication: ANTI-INFECTIVE THERAPY
     Dosage: 260 MG, 1X/DAY
     Route: 048
     Dates: start: 201707, end: 20190521
  2. ZITHROMAX [Concomitant]
     Active Substance: AZITHROMYCIN DIHYDRATE
     Indication: ANTI-INFECTIVE THERAPY
     Dosage: 260 MG, 1X/DAY
     Route: 048
     Dates: start: 201707
  3. BACTRIM [Concomitant]
     Active Substance: SULFAMETHOXAZOLE\TRIMETHOPRIM
     Indication: ANTI-INFECTIVE THERAPY
     Dosage: 600 MG, WEEKLY
     Route: 048
     Dates: start: 201707
  4. CELLCEPT [Concomitant]
     Active Substance: MYCOPHENOLATE MOFETIL\MYCOPHENOLATE MOFETIL HYDROCHLORIDE
     Indication: PROPHYLAXIS AGAINST TRANSPLANT REJECTION
     Dosage: 200 MG, 1X/DAY
     Route: 048
     Dates: start: 201707, end: 20190604
  5. HYDROCORTISONE. [Concomitant]
     Active Substance: HYDROCORTISONE
     Indication: ADRENAL INSUFFICIENCY
     Dosage: 8 MG, 1X/DAY
     Route: 048
     Dates: start: 20181116
  6. PRIVIGEN [Concomitant]
     Active Substance: HUMAN IMMUNOGLOBULIN G
     Indication: PROPHYLAXIS AGAINST TRANSPLANT REJECTION
     Dosage: 5 G, UNK
     Route: 042
     Dates: start: 201707
  7. CALCIDOSE [CALCIUM CARBONATE] [Concomitant]
     Active Substance: CALCIUM CARBONATE
     Indication: CALCIUM DEFICIENCY
     Dosage: 1 DF, 1X/DAY
     Route: 048
     Dates: start: 201707
  8. MODIGRAF [Suspect]
     Active Substance: TACROLIMUS
     Indication: PROPHYLAXIS AGAINST TRANSPLANT REJECTION
     Dosage: 0.4 MG, 1X/DAY
     Route: 048
     Dates: start: 201804
  9. ORACILLINE [PHENOXYMETHYLPENICILLIN BENZATHINE] [Concomitant]
     Active Substance: PENICILLIN V BENZATHINE
     Indication: ANTI-INFECTIVE THERAPY
     Dosage: 1 MILLION IU, 1X/DAY
     Route: 048
     Dates: start: 201707, end: 20190521
  10. ZOVIRAX [Concomitant]
     Active Substance: ACYCLOVIR
     Indication: ANTI-INFECTIVE THERAPY
     Dosage: 600 MG, 1X/DAY
     Route: 048
     Dates: start: 201804

REACTIONS (1)
  - Drug level decreased [Not Recovered/Not Resolved]

NARRATIVE: CASE EVENT DATE: 20190605
